FAERS Safety Report 5854203-X (Version None)
Quarter: 2008Q3

REPORT INFORMATION
  Report Type: 
  Country: None (occurrence: None)
  Receive Date: 20080818
  Receipt Date: 20080425
  Transmission Date: 20090109
  Serious: No
  Sender: FDA-Public Use
  Company Number: WAES 0804US05444

PATIENT
  Age: 87 Year
  Sex: Female

DRUGS (8)
  1. JANUVIA [Suspect]
     Indication: TYPE 2 DIABETES MELLITUS
     Dosage: 100 MG/DAILY/PO
     Route: 048
     Dates: start: 20071201
  2. ASACOL [Concomitant]
  3. COZAAR [Concomitant]
  4. EFFEXOR [Concomitant]
  5. NEXIUM [Concomitant]
  6. LEVOTHYROXINE SODIUM [Concomitant]
  7. METOPROLOL [Concomitant]
  8. TORSEMIDE [Concomitant]

REACTIONS (1)
  - DRUG INEFFECTIVE [None]
